FAERS Safety Report 6245689-X (Version None)
Quarter: 2009Q2

REPORT INFORMATION
  Report Type: 
  Country: None (occurrence: None)
  Receive Date: 20090625
  Receipt Date: 20090616
  Transmission Date: 20091009
  Serious: Yes (Hospitalization)
  Sender: FDA-Public Use
  Company Number: GB-BAXTER-2009BH010324

PATIENT
  Age: 27 Year
  Sex: Male

DRUGS (16)
  1. IFOSFAMIDE [Suspect]
     Indication: DIFFUSE LARGE B-CELL LYMPHOMA
     Route: 065
     Dates: start: 20060914, end: 20060914
  2. IFOSFAMIDE [Suspect]
     Route: 065
     Dates: start: 20061005, end: 20061005
  3. IFOSFAMIDE [Suspect]
     Route: 065
     Dates: start: 20061025, end: 20061025
  4. ETOPOSIDE [Suspect]
     Indication: DIFFUSE LARGE B-CELL LYMPHOMA
     Route: 065
     Dates: start: 20060913, end: 20060915
  5. ETOPOSIDE [Suspect]
     Route: 065
     Dates: start: 20061004, end: 20061006
  6. ETOPOSIDE [Suspect]
     Route: 065
     Dates: start: 20061024, end: 20061026
  7. CARBOPLATIN [Suspect]
     Indication: DIFFUSE LARGE B-CELL LYMPHOMA
     Route: 065
     Dates: start: 20060914, end: 20060914
  8. CARBOPLATIN [Suspect]
     Route: 065
     Dates: start: 20061005, end: 20061005
  9. CARBOPLATIN [Suspect]
     Route: 065
     Dates: start: 20061025, end: 20061025
  10. RITUXIMAB [Suspect]
     Indication: DIFFUSE LARGE B-CELL LYMPHOMA
     Route: 065
  11. RITUXIMAB [Suspect]
     Route: 065
     Dates: start: 20060913, end: 20060913
  12. RITUXIMAB [Suspect]
     Route: 065
     Dates: start: 20061004, end: 20061004
  13. RITUXIMAB [Suspect]
     Route: 065
     Dates: start: 20061024, end: 20061024
  14. PARACETAMOL WITH CODEINE PHOSPHATE [Concomitant]
     Indication: ABDOMINAL PAIN
     Route: 065
  15. IBUPROFEN [Concomitant]
     Indication: ABDOMINAL PAIN
     Route: 065
  16. MORPHINE [Concomitant]
     Indication: PAIN
     Route: 065

REACTIONS (1)
  - NEUTROPENIC SEPSIS [None]
